FAERS Safety Report 15288700 (Version 2)
Quarter: 2018Q3

REPORT INFORMATION
  Report Type: Report from Study
  Country: AU (occurrence: AU)
  Receive Date: 20180817
  Receipt Date: 20180904
  Transmission Date: 20181010
  Serious: Yes (Life-Threatening, Hospitalization, Other)
  Sender: FDA-Public Use
  Company Number: AU-ROCHE-2170510

PATIENT
  Age: 75 Year
  Sex: Male
  Weight: 72 kg

DRUGS (45)
  1. OBINUTUZUMAB. [Suspect]
     Active Substance: OBINUTUZUMAB
     Dosage: C2D1
     Route: 042
     Dates: start: 20160608, end: 20160608
  2. OBINUTUZUMAB. [Suspect]
     Active Substance: OBINUTUZUMAB
     Dosage: C3D1
     Route: 042
     Dates: start: 20160705, end: 20160705
  3. BGB?3111 [Suspect]
     Active Substance: INVESTIGATIONAL PRODUCT
     Dosage: CYCLE15
     Route: 048
     Dates: start: 20170830, end: 20171024
  4. BGB?3111 [Suspect]
     Active Substance: INVESTIGATIONAL PRODUCT
     Dosage: CYCLE 17
     Route: 048
     Dates: start: 20171220, end: 20180213
  5. OBINUTUZUMAB. [Suspect]
     Active Substance: OBINUTUZUMAB
     Indication: B-CELL LYMPHOMA
     Dosage: C1D1
     Route: 042
     Dates: start: 20160510, end: 20160510
  6. OBINUTUZUMAB. [Suspect]
     Active Substance: OBINUTUZUMAB
     Dosage: C1D2
     Route: 042
     Dates: start: 20160511, end: 20160511
  7. BGB?3111 [Suspect]
     Active Substance: INVESTIGATIONAL PRODUCT
     Indication: B-CELL LYMPHOMA
     Dosage: CYCLE1
     Route: 048
     Dates: start: 20160510, end: 20160607
  8. BGB?3111 [Suspect]
     Active Substance: INVESTIGATIONAL PRODUCT
     Dosage: CYCLE 8
     Route: 048
     Dates: start: 20161123, end: 20161220
  9. BGB?3111 [Suspect]
     Active Substance: INVESTIGATIONAL PRODUCT
     Dosage: CYCLE 9
     Route: 048
     Dates: start: 20161221, end: 20170117
  10. BGB?3111 [Suspect]
     Active Substance: INVESTIGATIONAL PRODUCT
     Dosage: CYCLE 11
     Route: 048
     Dates: start: 20170215, end: 20170314
  11. INDAPAMIDE. [Concomitant]
     Active Substance: INDAPAMIDE
     Route: 048
     Dates: start: 2001, end: 20160607
  12. INDAPAMIDE. [Concomitant]
     Active Substance: INDAPAMIDE
     Route: 048
     Dates: start: 20161011
  13. OBINUTUZUMAB. [Suspect]
     Active Substance: OBINUTUZUMAB
     Dosage: C1D8
     Route: 042
     Dates: start: 20160518, end: 20160518
  14. OBINUTUZUMAB. [Suspect]
     Active Substance: OBINUTUZUMAB
     Dosage: C6D1
     Route: 042
     Dates: start: 20160927, end: 20160927
  15. BGB?3111 [Suspect]
     Active Substance: INVESTIGATIONAL PRODUCT
     Dosage: CYCLE 18
     Route: 048
     Dates: start: 20171220, end: 20180213
  16. BGB?3111 [Suspect]
     Active Substance: INVESTIGATIONAL PRODUCT
     Dosage: CYCLE 19
     Route: 048
     Dates: start: 20180214, end: 20180409
  17. NOTEN [Concomitant]
     Active Substance: ATENOLOL
     Route: 048
     Dates: start: 2001
  18. KINSON [Concomitant]
     Active Substance: CARBIDOPA\LEVODOPA
     Route: 065
     Dates: start: 2014
  19. BGB?3111 [Suspect]
     Active Substance: INVESTIGATIONAL PRODUCT
     Dosage: CYCLE 12
     Route: 048
     Dates: start: 20170315, end: 20170411
  20. BGB?3111 [Suspect]
     Active Substance: INVESTIGATIONAL PRODUCT
     Dosage: CYCLE 13
     Route: 048
     Dates: start: 20170412, end: 20170509
  21. IVIG [Concomitant]
     Active Substance: HUMAN IMMUNOGLOBULIN G
     Route: 042
     Dates: start: 20180314
  22. DUODART [Concomitant]
     Active Substance: DUTASTERIDE\TAMSULOSIN
     Route: 048
     Dates: start: 20180618
  23. BGB?3111 [Suspect]
     Active Substance: INVESTIGATIONAL PRODUCT
     Dosage: CYCLE2
     Route: 048
     Dates: start: 20160608, end: 20160704
  24. BGB?3111 [Suspect]
     Active Substance: INVESTIGATIONAL PRODUCT
     Dosage: CYCLE 5
     Route: 048
     Dates: start: 20160830, end: 20160926
  25. BGB?3111 [Suspect]
     Active Substance: INVESTIGATIONAL PRODUCT
     Dosage: CYCLE 6
     Route: 048
     Dates: start: 20160927, end: 20161025
  26. BGB?3111 [Suspect]
     Active Substance: INVESTIGATIONAL PRODUCT
     Dosage: CYCLE 14
     Route: 048
     Dates: start: 20170510, end: 20170606
  27. BGB?3111 [Suspect]
     Active Substance: INVESTIGATIONAL PRODUCT
     Dosage: CYCLE 14
     Route: 048
     Dates: start: 20170614, end: 20170704
  28. BGB?3111 [Suspect]
     Active Substance: INVESTIGATIONAL PRODUCT
     Dosage: CYCLE 16
     Route: 048
     Dates: start: 20171025, end: 20171219
  29. BGB?3111 [Suspect]
     Active Substance: INVESTIGATIONAL PRODUCT
     Dosage: CYCLE 20
     Route: 048
     Dates: start: 20180410, end: 20180605
  30. PRADAXA [Concomitant]
     Active Substance: DABIGATRAN ETEXILATE MESYLATE
     Route: 065
     Dates: start: 20160517
  31. SLOW K [Concomitant]
     Active Substance: POTASSIUM CHLORIDE
     Route: 065
     Dates: start: 20161220
  32. FRUSEMIDE [Concomitant]
     Active Substance: FUROSEMIDE
     Route: 048
     Dates: start: 20180601, end: 20180601
  33. LEVETIRACETAM. [Concomitant]
     Active Substance: LEVETIRACETAM
     Route: 048
     Dates: start: 20180618
  34. OBINUTUZUMAB. [Suspect]
     Active Substance: OBINUTUZUMAB
     Dosage: C4D1
     Route: 042
     Dates: start: 20160802, end: 20160802
  35. BGB?3111 [Suspect]
     Active Substance: INVESTIGATIONAL PRODUCT
     Dosage: CYCLE4
     Route: 048
     Dates: start: 20160802, end: 20160829
  36. BGB?3111 [Suspect]
     Active Substance: INVESTIGATIONAL PRODUCT
     Dosage: CYCLE 7
     Route: 048
     Dates: start: 20161026, end: 20161122
  37. OBINUTUZUMAB. [Suspect]
     Active Substance: OBINUTUZUMAB
     Dosage: C1D15
     Route: 042
     Dates: start: 20160525, end: 20160525
  38. OBINUTUZUMAB. [Suspect]
     Active Substance: OBINUTUZUMAB
     Dosage: C5D1
     Route: 042
     Dates: start: 20160830, end: 20160830
  39. BGB?3111 [Suspect]
     Active Substance: INVESTIGATIONAL PRODUCT
     Dosage: CYCLE3
     Route: 048
     Dates: start: 20160705, end: 20160801
  40. BGB?3111 [Suspect]
     Active Substance: INVESTIGATIONAL PRODUCT
     Dosage: CYCLE 10
     Route: 048
     Dates: start: 20170118, end: 20170214
  41. BGB?3111 [Suspect]
     Active Substance: INVESTIGATIONAL PRODUCT
     Dosage: CYCLE 15
     Route: 048
     Dates: start: 20170705, end: 20170829
  42. DIGOXIN. [Concomitant]
     Active Substance: DIGOXIN
     Route: 048
     Dates: start: 2011
  43. FLOMAXTRA [Concomitant]
     Active Substance: TAMSULOSIN HYDROCHLORIDE
     Route: 065
     Dates: start: 2011
  44. PRADAXA [Concomitant]
     Active Substance: DABIGATRAN ETEXILATE MESYLATE
     Route: 065
     Dates: start: 2011, end: 20160510
  45. TEMAZEPAM. [Concomitant]
     Active Substance: TEMAZEPAM
     Route: 065
     Dates: start: 2014

REACTIONS (6)
  - Haematuria [Not Recovered/Not Resolved]
  - Thrombocytopenia [Recovered/Resolved]
  - Loss of consciousness [Not Recovered/Not Resolved]
  - Hypokalaemia [Recovered/Resolved]
  - Neutropenia [Recovered/Resolved with Sequelae]
  - Bronchitis [Recovered/Resolved]

NARRATIVE: CASE EVENT DATE: 20161219
